FAERS Safety Report 4491267-2 (Version None)
Quarter: 2004Q4

REPORT INFORMATION
  Report Type: 
  Country: None (occurrence: None)
  Receive Date: 20041103
  Receipt Date: 20040915
  Transmission Date: 20050328
  Serious: Yes (Other)
  Sender: FDA-Public Use
  Company Number: 2004-09-0191

PATIENT
  Age: 89 Year
  Sex: Male
  Weight: 60 kg

DRUGS (12)
  1. BUPRENORPHINE HCL [Suspect]
     Indication: BACK PAIN
     Route: 048
     Dates: start: 20040730, end: 20040806
  2. BUPRENORPHINE HCL [Suspect]
     Route: 048
     Dates: start: 20040807, end: 20040808
  3. BUPRENORPHINE HCL [Suspect]
     Route: 048
     Dates: start: 20040809, end: 20040811
  4. PARACETAMOL [Concomitant]
     Indication: DRUG USE FOR UNKNOWN INDICATION
     Route: 048
     Dates: start: 20040730, end: 20040811
  5. HEPARIN SODIUM [Concomitant]
     Indication: DRUG USE FOR UNKNOWN INDICATION
     Route: 058
     Dates: start: 20040801, end: 20040801
  6. ACETYLSALICYLIC ACID [Concomitant]
     Indication: CORONARY ARTERY DISEASE
     Route: 048
  7. ESOMEPRAZOLE [Concomitant]
     Indication: DRUG USE FOR UNKNOWN INDICATION
     Route: 048
  8. CLOPIDOGREL BISULFATE [Concomitant]
     Indication: DRUG USE FOR UNKNOWN INDICATION
     Route: 048
  9. LISINOPRIL [Concomitant]
     Indication: HYPERTENSION
     Route: 048
  10. SIMVASTATIN [Concomitant]
     Indication: DYSLIPIDAEMIA
     Route: 048
  11. CALCIUM ACETATE [Concomitant]
     Indication: RENAL FAILURE
     Route: 048
  12. VANCOMYCIN HYDROCHLORIDE [Concomitant]
     Indication: SPONDYLITIS
     Route: 043
     Dates: start: 20040730, end: 20040730

REACTIONS (5)
  - DYSKINESIA [None]
  - HALLUCINATION [None]
  - HALLUCINATION, VISUAL [None]
  - METABOLIC ENCEPHALOPATHY [None]
  - STUPOR [None]
